FAERS Safety Report 13206410 (Version 1)
Quarter: 2017Q1

REPORT INFORMATION
  Report Type: Spontaneous
  Country: US (occurrence: US)
  Receive Date: 20170208
  Receipt Date: 20170208
  Transmission Date: 20170428
  Serious: No
  Sender: FDA-Public Use
  Company Number: None

PATIENT
  Age: 68 Year
  Sex: Female

DRUGS (6)
  1. IBRANCE [Suspect]
     Active Substance: PALBOCICLIB
     Indication: MULTIPLE SCLEROSIS
  2. IBRANCE [Suspect]
     Active Substance: PALBOCICLIB
     Indication: MAJOR DEPRESSION
  3. IBRANCE [Suspect]
     Active Substance: PALBOCICLIB
     Indication: ANXIETY DISORDER
  4. IBRANCE [Suspect]
     Active Substance: PALBOCICLIB
     Indication: PRODUCT USED FOR UNKNOWN INDICATION
  5. IBRANCE [Suspect]
     Active Substance: PALBOCICLIB
     Indication: BREAST CANCER FEMALE
  6. IBRANCE [Suspect]
     Active Substance: PALBOCICLIB
     Indication: MUSCLE SPASMS

REACTIONS (5)
  - Depression [None]
  - Mood swings [None]
  - Hallucination [None]
  - Agitation [None]
  - Anxiety [None]

NARRATIVE: CASE EVENT DATE: 20170123
